FAERS Safety Report 14631906 (Version 3)
Quarter: 2018Q2

REPORT INFORMATION
  Report Type: Report from Study
  Country: UA (occurrence: UA)
  Receive Date: 20180313
  Receipt Date: 20180403
  Transmission Date: 20180711
  Serious: Yes (Other)
  Sender: FDA-Public Use
  Company Number: UA-TEVA-2018-UA-867128

PATIENT
  Age: 2 Year
  Sex: Male
  Weight: 12.5 kg

DRUGS (9)
  1. LONQUEX [Suspect]
     Active Substance: LIPEGFILGRASTIM
     Indication: COLONY STIMULATING FACTOR PROPHYLAXIS
     Dosage: 1.25 MILLIGRAM DAILY; LAST DOSE PRIOR TO SAE: 26-FEB-2018
     Route: 058
     Dates: start: 20171217
  2. VINCRISTINE [Suspect]
     Active Substance: VINCRISTINE
     Indication: PRIMITIVE NEUROECTODERMAL TUMOUR
     Dosage: LAST DOSE PRIOR TO SAE: 13-FEB-2018?CYCLES 1-3: CTX-DAY 1, CTX-DAY 8, AND CTX-DAY 15
     Route: 042
     Dates: start: 20171215
  3. ETOPOSIDE. [Suspect]
     Active Substance: ETOPOSIDE
     Indication: PRIMITIVE NEUROECTODERMAL TUMOUR
     Dosage: LAST DOSE PRIOR TO SAE: 25-FEB-2018?CYCLES 2-4: CTX-DAYS 1-5
     Route: 042
     Dates: start: 20180221, end: 20180225
  4. LASIX [Concomitant]
     Active Substance: FUROSEMIDE
     Indication: PROPHYLAXIS
     Dosage: .6 ML DAILY;
     Route: 042
     Dates: start: 20180221, end: 20180226
  5. DOXORUBICIN [Suspect]
     Active Substance: DOXORUBICIN
     Indication: PRIMITIVE NEUROECTODERMAL TUMOUR
     Dosage: LAST DOSE PRIOR TO SAE: 30-JAN-2018?CYCLES 1,3: DAY 1
     Route: 042
     Dates: start: 20171215
  6. IFOSFAMID [Suspect]
     Active Substance: IFOSFAMIDE
     Indication: PRIMITIVE NEUROECTODERMAL TUMOUR
     Dosage: LAST DOSE PRIOR TO SAE: 25-FEB-2018?CYCLES 2-4: CTX-DAYS 1-5
     Route: 042
     Dates: start: 20180221
  7. DEXAMETHASONE. [Concomitant]
     Active Substance: DEXAMETHASONE
     Indication: PROPHYLAXIS OF NAUSEA AND VOMITING
     Dosage: 4 MILLIGRAM DAILY;
     Route: 042
     Dates: start: 20180221, end: 20180226
  8. CYCLOPHOSPHAMIDE. [Suspect]
     Active Substance: CYCLOPHOSPHAMIDE
     Indication: PRIMITIVE NEUROECTODERMAL TUMOUR
     Dosage: LAST DOSE PRIOR TO SAE: 31-JAN-2018?CYCLES 1, 3 DAYS 1-2
     Route: 042
     Dates: start: 20171215
  9. ONDANSETRON [Concomitant]
     Active Substance: ONDANSETRON
     Indication: PROPHYLAXIS OF NAUSEA AND VOMITING
     Dosage: 2 MILLIGRAM DAILY;
     Route: 042
     Dates: start: 20180221, end: 20180226

REACTIONS (1)
  - Lymphopenia [Recovered/Resolved]

NARRATIVE: CASE EVENT DATE: 20180301
